FAERS Safety Report 5319319-5 (Version None)
Quarter: 2007Q2

REPORT INFORMATION
  Report Type: 
  Country: None (occurrence: None)
  Receive Date: 20070508
  Receipt Date: 20070424
  Transmission Date: 20071010
  Serious: Yes (Hospitalization)
  Sender: FDA-Public Use
  Company Number: US-AMGEN-US221460

PATIENT
  Sex: Male

DRUGS (1)
  1. ENBREL [Suspect]
     Indication: PSORIASIS
     Route: 058
     Dates: start: 20050101

REACTIONS (7)
  - CERVICAL VERTEBRAL FRACTURE [None]
  - DEPRESSION [None]
  - LIMB TRAUMATIC AMPUTATION [None]
  - LOSS OF CONSCIOUSNESS [None]
  - PANIC REACTION [None]
  - RIB FRACTURE [None]
  - STERNAL FRACTURE [None]
